FAERS Safety Report 7171534-4 (Version None)
Quarter: 2010Q4

REPORT INFORMATION
  Report Type: 
  Country: None (occurrence: None)
  Receive Date: 20101217
  Receipt Date: 20101210
  Transmission Date: 20110411
  Serious: Yes (Other)
  Sender: FDA-Public Use
  Company Number: FI-PFIZER INC-2010147828

PATIENT
  Age: 35 Year
  Sex: Male

DRUGS (2)
  1. CHANTIX [Suspect]
     Dosage: UNK
     Dates: start: 20101026, end: 20101109
  2. CHANTIX [Suspect]
     Dosage: HALF DOSE
     Dates: start: 20101110, end: 20101119

REACTIONS (1)
  - SINUSITIS [None]
